FAERS Safety Report 17550735 (Version 1)
Quarter: 2020Q1

REPORT INFORMATION
  Report Type: Spontaneous
  Country: FR (occurrence: FR)
  Receive Date: 20200317
  Receipt Date: 20200317
  Transmission Date: 20200409
  Serious: Yes (Hospitalization, Other)
  Sender: FDA-Public Use
  Company Number: FR-SA-2020SA066097

PATIENT
  Age: 77 Year
  Sex: Male

DRUGS (2)
  1. CLINDAMYCIN HYDROCHLORIDE. [Suspect]
     Active Substance: CLINDAMYCIN HYDROCHLORIDE
     Indication: BRAIN ABSCESS
     Dosage: 2400 MG, QD
     Route: 041
     Dates: start: 20200124, end: 20200130
  2. RIFAMPICIN [Suspect]
     Active Substance: RIFAMPIN
     Indication: BRAIN ABSCESS
     Dosage: 18000 MG, QD
     Route: 048
     Dates: start: 20200120, end: 20200201

REACTIONS (2)
  - Hepatocellular injury [Recovering/Resolving]
  - Hyperbilirubinaemia [Recovered/Resolved]

NARRATIVE: CASE EVENT DATE: 20200124
